FAERS Safety Report 13230284 (Version 1)
Quarter: 2017Q1

REPORT INFORMATION
  Report Type: Spontaneous
  Country: JP (occurrence: JP)
  Receive Date: 20170214
  Receipt Date: 20170214
  Transmission Date: 20170428
  Serious: Yes (Hospitalization)
  Sender: FDA-Public Use
  Company Number: JP-ASTRAZENECA-2017SE15295

PATIENT
  Age: 59 Year
  Sex: Female

DRUGS (2)
  1. FASLODEX [Suspect]
     Active Substance: FULVESTRANT
     Dosage: DOSE UNKNOWN
     Route: 030
  2. ANTICANCER DRUGS [Concomitant]
     Indication: BREAST CANCER

REACTIONS (3)
  - Female sex hormone level abnormal [Unknown]
  - Cerebral disorder [Unknown]
  - Malignant neoplasm progression [Unknown]
